FAERS Safety Report 24281766 (Version 3)
Quarter: 2024Q4

REPORT INFORMATION
  Report Type: Spontaneous
  Country: GR (occurrence: GR)
  Receive Date: 20240904
  Receipt Date: 20241030
  Transmission Date: 20250114
  Serious: No
  Sender: PFIZER
  Company Number: GR-PFIZER INC-PV202400113843

PATIENT
  Age: 17 Year
  Sex: Male
  Weight: 68 kg

DRUGS (1)
  1. GENOTROPIN [Suspect]
     Active Substance: SOMATROPIN
     Indication: Growth hormone deficiency
     Dosage: 12MG WEEKLY/ 6 DAYS
     Route: 058
     Dates: start: 202306, end: 20240812

REACTIONS (3)
  - Device mechanical issue [Unknown]
  - Poor quality device used [Unknown]
  - Drug dose omission by device [Unknown]

NARRATIVE: CASE EVENT DATE: 20240101
